FAERS Safety Report 9283551 (Version 1)
Quarter: 2013Q2

REPORT INFORMATION
  Report Type: Spontaneous
  Country: US (occurrence: US)
  Receive Date: 20130510
  Receipt Date: 20130510
  Transmission Date: 20140414
  Serious: Yes (Other)
  Sender: FDA-Public Use
  Company Number: US-PERRIGO-13US004800

PATIENT
  Age: 7 Year
  Sex: Male
  Weight: 22.68 kg

DRUGS (2)
  1. ACETAMINOPHEN CHILD CHERRY 32 MG/ML 175 [Suspect]
     Indication: PAIN IN EXTREMITY
     Dosage: 320 MG, SINGLE
     Route: 048
     Dates: start: 20130430, end: 20130430
  2. ACETAMINOPHEN CHILD CHERRY 32 MG/ML 175 [Suspect]
     Indication: PYREXIA

REACTIONS (1)
  - Hallucination [Recovered/Resolved]
